FAERS Safety Report 11835580 (Version 1)
Quarter: 2015Q4

REPORT INFORMATION
  Report Type: Spontaneous
  Country: US (occurrence: US)
  Receive Date: 20151215
  Receipt Date: 20151215
  Transmission Date: 20160305
  Serious: No
  Sender: FDA-Public Use
  Company Number: US-009507513-1512USA003541

PATIENT
  Age: 52 Year
  Sex: Female

DRUGS (2)
  1. INDOMETHACIN. [Concomitant]
     Active Substance: INDOMETHACIN
     Dosage: UNK
  2. INTRON A [Suspect]
     Active Substance: INTERFERON ALFA-2B
     Indication: MALIGNANT MELANOMA
     Dosage: 18 MIU, EVERY OTHER DAY
     Route: 058
     Dates: start: 20150822, end: 201512

REACTIONS (2)
  - Dehydration [Unknown]
  - Depressed mood [Unknown]

NARRATIVE: CASE EVENT DATE: 20151204
